FAERS Safety Report 21274892 (Version 1)
Quarter: 2022Q3

REPORT INFORMATION
  Report Type: Spontaneous
  Country: US (occurrence: US)
  Receive Date: 20220831
  Receipt Date: 20220831
  Transmission Date: 20221027
  Serious: Yes (Hospitalization)
  Sender: FDA-Public Use
  Company Number: US-ALVOGEN-2022-ALVOGEN-120807

PATIENT
  Age: 3 Month
  Sex: Male
  Weight: 6.24 kg

DRUGS (9)
  1. FENTANYL [Suspect]
     Active Substance: FENTANYL
     Indication: Analgesic therapy
     Dosage: 7.2 MG/KG
  2. ROPIVACAINE [Concomitant]
     Active Substance: ROPIVACAINE
     Indication: Product used for unknown indication
     Route: 058
  3. SEVOFLURANE [Concomitant]
     Active Substance: SEVOFLURANE
     Indication: Product used for unknown indication
  4. DEXMEDETOMIDINE [Concomitant]
     Active Substance: DEXMEDETOMIDINE
     Indication: Product used for unknown indication
     Route: 042
  5. SUGAMMADEX [Concomitant]
     Active Substance: SUGAMMADEX
     Indication: Reversal of analgesia
  6. FENTANYL [Suspect]
     Active Substance: FENTANYL
     Indication: Analgesic therapy
     Dosage: 7.2 MG/KG
  7. FENTANYL [Suspect]
     Active Substance: FENTANYL
     Indication: Analgesic therapy
  8. FENTANYL [Suspect]
     Active Substance: FENTANYL
     Indication: Analgesic therapy
  9. FENTANYL [Suspect]
     Active Substance: FENTANYL
     Indication: Analgesic therapy
     Dosage: 0.5-1 MCG KG_1 HR_1

REACTIONS (1)
  - Hyperaesthesia [Recovering/Resolving]
